FAERS Safety Report 9045188 (Version 1)
Quarter: 2013Q1

REPORT INFORMATION
  Report Type: Report from Study
  Country: US (occurrence: US)
  Receive Date: 20130130
  Receipt Date: 20130130
  Transmission Date: 20140127
  Serious: No
  Sender: FDA-Public Use
  Company Number: US-ABBOTT-12P-163-0971359-00

PATIENT
  Age: 37 Year
  Sex: Female

DRUGS (5)
  1. HUMIRA 40 MG/0.8 ML PEN [Suspect]
     Indication: PSORIASIS
     Dates: start: 201203
  2. COREG [Concomitant]
     Indication: PRODUCT USED FOR UNKNOWN INDICATION
     Route: 048
  3. LISINOPRIL [Concomitant]
     Indication: HYPERTENSION
     Dosage: 20/12.5MG DAILY; DOES NOT ALWAYS TAKE THIS ONE, IF SHE WILL BE IN SUN SHE DOES NOT TAKE IT
     Route: 048
  4. SPRINTEC [Concomitant]
     Indication: CONTRACEPTION
     Dosage: 28-DAY
     Route: 048
  5. NAPROXEN [Concomitant]
     Indication: HEADACHE
     Route: 048

REACTIONS (3)
  - Device malfunction [Recovered/Resolved]
  - Incorrect dose administered by device [Recovered/Resolved]
  - Injection site pain [Recovered/Resolved]
